FAERS Safety Report 17068902 (Version 1)
Quarter: 2019Q4

REPORT INFORMATION
  Report Type: Spontaneous
  Country: US (occurrence: US)
  Receive Date: 20191024
  Receipt Date: 20191024
  Transmission Date: 20200122
  Serious: No
  Sender: FDA-Public Use
  Company Number: None

PATIENT

DRUGS (1)
  1. LAMOTRIGINE. [Suspect]
     Active Substance: LAMOTRIGINE

REACTIONS (6)
  - Incorrect dose administered [None]
  - Product packaging quantity issue [None]
  - Product physical issue [None]
  - Product dispensing error [None]
  - Product size issue [None]
  - Transcription medication error [None]
